FAERS Safety Report 4688614-5 (Version None)
Quarter: 2005Q2

REPORT INFORMATION
  Report Type: 
  Country: None (occurrence: None)
  Receive Date: 20050609
  Receipt Date: 20050609
  Transmission Date: 20051028
  Serious: Yes (Other)
  Sender: FDA-Public Use
  Company Number: None

PATIENT

DRUGS (1)
  1. SARAPIN [Suspect]

REACTIONS (2)
  - DYSPNOEA [None]
  - HEPATIC ENZYME INCREASED [None]
